FAERS Safety Report 4430933-1 (Version None)
Quarter: 2004Q3

REPORT INFORMATION
  Report Type: 
  Country: None (occurrence: None)
  Receive Date: 20040823
  Receipt Date: 20040719
  Transmission Date: 20050211
  Serious: Yes (Hospitalization)
  Sender: FDA-Public Use
  Company Number: FR-MERCK-0407FRA00043

PATIENT
  Age: 56 Year
  Sex: Female

DRUGS (7)
  1. ACEBUTOLOL HYDROCHLORIDE [Suspect]
     Indication: HYPERTENSION
     Route: 048
  2. ACETAMINOPHEN AND PROPOXYPHENE HYDROCHLORIDE [Suspect]
     Route: 048
  3. DOMPERIDONE [Suspect]
     Route: 048
  4. FLUVASTATIN SODIUM [Suspect]
     Route: 048
     Dates: end: 20031201
  5. FLUVASTATIN SODIUM [Suspect]
     Route: 048
     Dates: start: 20031201
  6. LANSOPRAZOLE [Suspect]
     Route: 048
  7. VIOXX [Suspect]
     Route: 048

REACTIONS (8)
  - ANTINUCLEAR ANTIBODY POSITIVE [None]
  - AUTOIMMUNE THYROIDITIS [None]
  - HAEMOGLOBIN DECREASED [None]
  - HEPATIC CIRRHOSIS [None]
  - HEPATITIS [None]
  - HEPATOMEGALY [None]
  - RHABDOMYOLYSIS [None]
  - SERUM FERRITIN INCREASED [None]
